FAERS Safety Report 19080913 (Version 1)
Quarter: 2021Q2

REPORT INFORMATION
  Report Type: Spontaneous
  Country: US (occurrence: US)
  Receive Date: 20210401
  Receipt Date: 20210401
  Transmission Date: 20210717
  Serious: Yes (Hospitalization)
  Sender: FDA-Public Use
  Company Number: US-TEVA-2021-US-1895025

PATIENT
  Sex: Female

DRUGS (1)
  1. AJOVY [Suspect]
     Active Substance: FREMANEZUMAB-VFRM
     Route: 065
     Dates: start: 2020

REACTIONS (5)
  - Injection site warmth [Unknown]
  - Injection site vesicles [Unknown]
  - Injection site erythema [Unknown]
  - Injection site extravasation [Unknown]
  - Injection site cellulitis [Unknown]
